FAERS Safety Report 5723805-3 (Version None)
Quarter: 2008Q2

REPORT INFORMATION
  Report Type: 
  Country: None (occurrence: None)
  Receive Date: 20080430
  Receipt Date: 20080408
  Transmission Date: 20081010
  Serious: No
  Sender: FDA-Public Use
  Company Number: US-JNJFOC-20080402782

PATIENT
  Age: 55 Year
  Sex: Female

DRUGS (4)
  1. INVEGA [Suspect]
     Indication: SCHIZOPHRENIA
     Route: 048
  2. COGENTIN [Concomitant]
  3. OXYTROL [Concomitant]
  4. VITAMIN E [Concomitant]
     Indication: NUTRITIONAL SUPPORT

REACTIONS (2)
  - BREAST TENDERNESS [None]
  - DRY MOUTH [None]
